FAERS Safety Report 7465909-3 (Version None)
Quarter: 2011Q2

REPORT INFORMATION
  Report Type: 
  Country: None (occurrence: None)
  Receive Date: 20110509
  Receipt Date: 20100503
  Transmission Date: 20111010
  Serious: No
  Sender: FDA-Public Use
  Company Number: US-ALEXION-A201000500

PATIENT
  Sex: Female

DRUGS (5)
  1. PRILOSEC [Concomitant]
     Dosage: 20 MG, PRN
     Route: 048
  2. SOLIRIS [Suspect]
     Indication: PAROXYSMAL NOCTURNAL HAEMOGLOBINURIA
     Dosage: 900 MG, Q2W
     Route: 042
     Dates: start: 20070701
  3. FLONASE [Concomitant]
     Dosage: 2 PUFF IN EACH NOSTRIL, QD
     Route: 045
  4. AMBIEN [Concomitant]
     Dosage: 10 MG, PRN
     Route: 048
  5. MULTI-VITAMINS [Concomitant]
     Dosage: 1 UNK, QD
     Route: 048

REACTIONS (8)
  - HYPOMENORRHOEA [None]
  - AMENORRHOEA [None]
  - SINUSITIS [None]
  - HAEMOGLOBINURIA [None]
  - GASTROINTESTINAL DISORDER [None]
  - HAEMOGLOBIN DECREASED [None]
  - OVULATION DISORDER [None]
  - HOT FLUSH [None]
